FAERS Safety Report 20162251 (Version 2)
Quarter: 2021Q4

REPORT INFORMATION
  Report Type: Spontaneous
  Country: BR (occurrence: BR)
  Receive Date: 20211208
  Receipt Date: 20211215
  Transmission Date: 20220303
  Serious: Yes (Other)
  Sender: FDA-Public Use
  Company Number: BR-AMERICAN REGENT INC-2021003181

PATIENT
  Sex: Female

DRUGS (1)
  1. VENOFER [Suspect]
     Active Substance: IRON SUCROSE
     Indication: Iron deficiency
     Dosage: 100 MG/ 5ML (5X5) VIALS, ^FREQUENTLY^
     Route: 042

REACTIONS (3)
  - Product availability issue [Unknown]
  - Condition aggravated [Unknown]
  - Feeling abnormal [Unknown]
